FAERS Safety Report 15021223 (Version 1)
Quarter: 2018Q2

REPORT INFORMATION
  Report Type: Other
  Country: TW (occurrence: TW)
  Receive Date: 20180618
  Receipt Date: 20180618
  Transmission Date: 20180720
  Serious: Yes (Hospitalization)
  Sender: FDA-Public Use
  Company Number: TW-LEADING PHARMA-2049546

PATIENT
  Age: 70 Year
  Sex: Male

DRUGS (1)
  1. HYDROCHLOROTHIAZIDE. [Suspect]
     Active Substance: HYDROCHLOROTHIAZIDE
     Indication: HYPERTENSION

REACTIONS (2)
  - Chondrocalcinosis pyrophosphate [Unknown]
  - Hypomagnesaemia [Unknown]
